FAERS Safety Report 14108572 (Version 2)
Quarter: 2017Q4

REPORT INFORMATION
  Report Type: Report from Study
  Country: GB (occurrence: GB)
  Receive Date: 20171019
  Receipt Date: 20171031
  Transmission Date: 20180321
  Serious: Yes (Life-Threatening, Hospitalization, Other)
  Sender: FDA-Public Use
  Company Number: GB-AMGEN-GBRCT2017158330

PATIENT
  Age: 15 Year
  Sex: Male
  Weight: 45.7 kg

DRUGS (7)
  1. DEXAMETHASONE. [Concomitant]
     Active Substance: DEXAMETHASONE
     Route: 042
     Dates: start: 20171014, end: 20171014
  2. BLINATUMOMAB [Suspect]
     Active Substance: BLINATUMOMAB
     Indication: ACUTE LYMPHOCYTIC LEUKAEMIA
     Dosage: 36.823 MUG/M2, QD
     Route: 065
     Dates: start: 20171013, end: 20171013
  3. PARACETAMOL [Concomitant]
     Active Substance: ACETAMINOPHEN
     Dosage: 650 MG, UNK
     Route: 042
     Dates: start: 20171013
  4. DEXAMETHASONE. [Concomitant]
     Active Substance: DEXAMETHASONE
     Dosage: 2-7 MG, UNK
     Route: 042
     Dates: start: 20171013
  5. ORAMORPH [Concomitant]
     Active Substance: MORPHINE SULFATE
     Dosage: 9 MG, UNK
     Route: 048
     Dates: start: 20171013
  6. ITRACONAZOLE. [Concomitant]
     Active Substance: ITRACONAZOLE
     Dosage: 200 MG, UNK
     Route: 048
  7. RANITIDINE. [Concomitant]
     Active Substance: RANITIDINE
     Dosage: 150 MG, UNK
     Route: 048
     Dates: start: 20171013

REACTIONS (1)
  - Neurological examination abnormal [Recovered/Resolved]

NARRATIVE: CASE EVENT DATE: 20171014
